FAERS Safety Report 5047810-8 (Version None)
Quarter: 2006Q3

REPORT INFORMATION
  Report Type: 
  Country: None (occurrence: None)
  Receive Date: 20060710
  Receipt Date: 20060710
  Transmission Date: 20061208
  Serious: Yes (Hospitalization)
  Sender: FDA-Public Use
  Company Number: None

PATIENT
  Age: 59 Year
  Sex: Male

DRUGS (15)
  1. ENOXAPARIN SODIUM [Suspect]
     Indication: AORTIC VALVE REPLACEMENT
     Dosage: 90 MG SQ Q12H
     Route: 058
     Dates: start: 20060418, end: 20060421
  2. WARFARIN SODIUM [Suspect]
     Indication: AORTIC VALVE REPLACEMENT
     Dosage: 5 MG DAILY
     Dates: start: 20060418, end: 20060421
  3. COUMADIN [Concomitant]
  4. LOVENOX [Concomitant]
  5. AFRIN [Concomitant]
  6. BACTRIM DS [Concomitant]
  7. OMEPRAXOLE [Concomitant]
  8. ARANESP [Concomitant]
  9. HYDRALAZINE HCL [Concomitant]
  10. IRON SULFATETHIAMIN COMPOUND TAB [Concomitant]
  11. ZOCOR [Concomitant]
  12. NITROGLYCERIN [Concomitant]
  13. COLACE [Concomitant]
  14. LASIX [Concomitant]
  15. ASPIRIN [Concomitant]

REACTIONS (3)
  - EPISTAXIS [None]
  - HAEMATOCRIT DECREASED [None]
  - INTERNATIONAL NORMALISED RATIO DECREASED [None]
